FAERS Safety Report 19375735 (Version 1)
Quarter: 2021Q2

REPORT INFORMATION
  Report Type: Spontaneous
  Country: SE (occurrence: SE)
  Receive Date: 20210604
  Receipt Date: 20210604
  Transmission Date: 20210717
  Serious: Yes (Congenital Anomaly, Other)
  Sender: FDA-Public Use
  Company Number: NVSC2021SE121662

PATIENT

DRUGS (2)
  1. CARBAMAZEPINE. [Suspect]
     Active Substance: CARBAMAZEPINE
     Indication: FOETAL EXPOSURE DURING PREGNANCY
     Dosage: MATERNAL DOSE: UNK, DURING FIRST TRIMESTER OF PREGNANCY
     Route: 064
  2. PHENOBARBITAL. [Suspect]
     Active Substance: PHENOBARBITAL
     Indication: FOETAL EXPOSURE DURING PREGNANCY
     Dosage: MATERNAL DOSE: 100 MG, QD
     Route: 064

REACTIONS (5)
  - Foetal exposure during pregnancy [Unknown]
  - Congenital mitral valve incompetence [Unknown]
  - Spleen malformation [Unknown]
  - Atrial septal defect [Unknown]
  - Accessory kidney [Unknown]

NARRATIVE: CASE EVENT DATE: 2001
